FAERS Safety Report 13133690 (Version 1)
Quarter: 2017Q1

REPORT INFORMATION
  Report Type: Spontaneous
  Country: US (occurrence: US)
  Receive Date: 20170119
  Receipt Date: 20170119
  Transmission Date: 20170428
  Serious: No
  Sender: FDA-Public Use
  Company Number: None

PATIENT
  Age: 58 Year
  Sex: Female
  Weight: 77.66 kg

DRUGS (1)
  1. FLUOXETINE 10MG CAP GENERIC FOR, 10 MG 68645-0131-54 FLUOXETINE 10MG CAP [Suspect]
     Active Substance: FLUOXETINE HYDROCHLORIDE
     Indication: MAJOR DEPRESSION
     Dosage: DATES OF USE - 3MO OUT OF EVERY YEAR SADD
     Route: 048
     Dates: start: 2012

REACTIONS (3)
  - Drug ineffective [None]
  - Feeling abnormal [None]
  - Product substitution issue [None]

NARRATIVE: CASE EVENT DATE: 2012
